FAERS Safety Report 7644148-7 (Version None)
Quarter: 2011Q3

REPORT INFORMATION
  Report Type: 
  Country: None (occurrence: None)
  Receive Date: 20110729
  Receipt Date: 20110718
  Transmission Date: 20111222
  Serious: Yes (Hospitalization)
  Sender: FDA-Public Use
  Company Number: US-BRISTOL-MYERS SQUIBB COMPANY-15908254

PATIENT
  Age: 82 Year
  Sex: Male

DRUGS (3)
  1. ISOTRETINOIN [Suspect]
     Indication: PROPHYLAXIS
     Route: 048
  2. WARFARIN SODIUM [Suspect]
  3. HYDROCHLOROTHIAZIDE [Suspect]

REACTIONS (9)
  - DISTURBANCE IN ATTENTION [None]
  - LIP DRY [None]
  - PERSONALITY CHANGE [None]
  - PRURITUS [None]
  - CARDIAC FAILURE CONGESTIVE [None]
  - EPISTAXIS [None]
  - DRY EYE [None]
  - IRRITABILITY [None]
  - INTERNATIONAL NORMALISED RATIO ABNORMAL [None]
